FAERS Safety Report 10997122 (Version 1)
Quarter: 2015Q2

REPORT INFORMATION
  Report Type: Spontaneous
  Country: US (occurrence: None)
  Receive Date: 20150407
  Receipt Date: 20150407
  Transmission Date: 20150821
  Serious: Yes (Hospitalization)
  Sender: FDA-Public Use
  Company Number: None

PATIENT
  Age: 74 Year
  Sex: Male
  Weight: 46 kg

DRUGS (1)
  1. RITUXIMAB [Suspect]
     Active Substance: RITUXIMAB
     Dates: start: 20150330, end: 20150330

REACTIONS (9)
  - Dyspnoea [None]
  - Lymphadenopathy [None]
  - Pulmonary mass [None]
  - Emphysema [None]
  - Heart rate increased [None]
  - Lung consolidation [None]
  - Left ventricular hypertrophy [None]
  - Oxygen saturation decreased [None]
  - Cardiomegaly [None]

NARRATIVE: CASE EVENT DATE: 20150330
